FAERS Safety Report 13961124 (Version 2)
Quarter: 2017Q3

REPORT INFORMATION
  Report Type: Spontaneous
  Country: JP (occurrence: JP)
  Receive Date: 20170912
  Receipt Date: 20170927
  Transmission Date: 20171128
  Serious: No
  Sender: FDA-Public Use
  Company Number: JP-ASTRAZENECA-2017SE92372

PATIENT
  Age: 57 Year
  Sex: Female

DRUGS (6)
  1. PULMICORT TURBUHALER [Suspect]
     Active Substance: BUDESONIDE
     Indication: ASTHMA
     Dosage: 200.0UG UNKNOWN
     Route: 055
     Dates: start: 20170815, end: 20170905
  2. GASTER [Concomitant]
     Active Substance: FAMOTIDINE
     Route: 048
  3. MOHRUS TAPE [Concomitant]
     Active Substance: KETOPROFEN
     Route: 062
  4. VOLTAREN [Concomitant]
     Active Substance: DICLOFENAC SODIUM
     Dosage: 50.0MG AS REQUIRED
     Route: 065
  5. MOHRUS TAPE [Concomitant]
     Active Substance: KETOPROFEN
     Route: 062
  6. AZILSARTAN [Concomitant]
     Active Substance: AZILSARTAN KAMEDOXOMIL
     Route: 048

REACTIONS (5)
  - Wheezing [Recovered/Resolved]
  - Drug ineffective [Unknown]
  - Dyspnoea [Recovered/Resolved]
  - Product quality issue [Unknown]
  - Asthenia [Unknown]

NARRATIVE: CASE EVENT DATE: 2017
